FAERS Safety Report 18694595 (Version 2)
Quarter: 2021Q1

REPORT INFORMATION
  Report Type: Spontaneous
  Country: BR (occurrence: BR)
  Receive Date: 20210104
  Receipt Date: 20210215
  Transmission Date: 20210419
  Serious: Yes (Death, Life-Threatening, Other)
  Sender: FDA-Public Use
  Company Number: NVSC2020BR346721

PATIENT
  Sex: Male
  Weight: 96.6 kg

DRUGS (4)
  1. SANDOSTATIN LAR DEPOT [Suspect]
     Active Substance: OCTREOTIDE ACETATE
     Indication: CARCINOID TUMOUR PULMONARY
     Dosage: 30 MG (EVERY 28 DAYS)
     Route: 030
     Dates: start: 20200325
  2. SANDOSTATIN LAR DEPOT [Suspect]
     Active Substance: OCTREOTIDE ACETATE
  3. ZOMETA [Suspect]
     Active Substance: ZOLEDRONIC ACID
     Indication: METASTASES TO BONE
     Dosage: UNK, QMO (ENDOVENOSE ROUTE)
     Route: 065
     Dates: start: 20200716
  4. SANDOSTATIN LAR DEPOT [Suspect]
     Active Substance: OCTREOTIDE ACETATE

REACTIONS (7)
  - Malignant neoplasm progression [Fatal]
  - Carcinoid tumour pulmonary [Fatal]
  - Hepatic failure [Unknown]
  - Metastases to bone [Fatal]
  - Lung neoplasm [Unknown]
  - Hyperbilirubinaemia [Fatal]
  - Metastases to liver [Unknown]
